FAERS Safety Report 17120684 (Version 1)
Quarter: 2019Q4

REPORT INFORMATION
  Report Type: Spontaneous
  Country: US (occurrence: US)
  Receive Date: 20191114
  Receipt Date: 20191114
  Transmission Date: 20200122
  Serious: No
  Sender: FDA-Public Use
  Company Number: None

PATIENT
  Age: 62 Year
  Sex: Male

DRUGS (1)
  1. GENGRAF [Suspect]
     Active Substance: CYCLOSPORINE
     Dosage: ?          OTHER DOSE:100MG AM, 50MG PM;?
     Route: 048
     Dates: start: 2009

REACTIONS (2)
  - Myalgia [None]
  - Drug interaction [None]

NARRATIVE: CASE EVENT DATE: 20191114
